FAERS Safety Report 19780107 (Version 1)
Quarter: 2021Q3

REPORT INFORMATION
  Report Type: Spontaneous
  Country: CA (occurrence: CA)
  Receive Date: 20210902
  Receipt Date: 20210902
  Transmission Date: 20211014
  Serious: Yes (Life-Threatening, Hospitalization)
  Sender: FDA-Public Use
  Company Number: CA-TEVA-2021-CA-1947079

PATIENT
  Age: 75 Year
  Sex: Female
  Weight: 59 kg

DRUGS (2)
  1. VENLAFAXINE XR [Suspect]
     Active Substance: VENLAFAXINE HYDROCHLORIDE
     Indication: ANXIETY
     Dosage: 75 MILLIGRAM DAILY;
     Route: 048
  2. BIO?HYDROCHLOROTHIAZIDE [Suspect]
     Active Substance: HYDROCHLOROTHIAZIDE
     Dosage: 25 MILLIGRAM DAILY;
     Route: 048

REACTIONS (2)
  - Intensive care [Recovered/Resolved]
  - Hyponatraemia [Recovered/Resolved]
